FAERS Safety Report 6230812-3 (Version None)
Quarter: 2009Q2

REPORT INFORMATION
  Report Type: 
  Country: None (occurrence: None)
  Receive Date: 20090611
  Receipt Date: 20090611
  Transmission Date: 20091009
  Serious: No
  Sender: FDA-Public Use
  Company Number: None

PATIENT
  Age: 68 Year
  Sex: Female

DRUGS (1)
  1. PYRIDOSTIGMINE BROMIDE [Suspect]
     Indication: MYASTHENIA GRAVIS
     Dosage: 2 TABLETS EVERY 4 HRS
     Dates: start: 20080917, end: 20090101

REACTIONS (2)
  - MALAISE [None]
  - PRODUCT QUALITY ISSUE [None]
